FAERS Safety Report 8833620 (Version 1)
Quarter: 2012Q4

REPORT INFORMATION
  Report Type: 
  Country: PT (occurrence: PT)
  Receive Date: 20121010
  Receipt Date: 20121010
  Transmission Date: 20130627
  Serious: Yes (Hospitalization)
  Sender: FDA-Public Use
  Company Number: PT-JNJFOC-20121005119

PATIENT
  Age: 69 Year
  Sex: Female

DRUGS (3)
  1. REMICADE [Suspect]
     Indication: RHEUMATOID ARTHRITIS
     Dosage: 3 mg/Kg administered 2 and 6 weeks after the first infusion and every 8 weeks thereafter, IV
     Route: 042
     Dates: start: 20110407, end: 201110
  2. ISONIAZID [Suspect]
     Indication: ANTIBIOTIC PROPHYLAXIS
     Dosage: 3 mg/Kg administered 2 and 6 weeks after the first infusion and every 8 weeks thereafter, IV
     Route: 048
     Dates: start: 20110121, end: 201109
  3. METHOTREXATE [Concomitant]
     Indication: RHEUMATOID ARTHRITIS
     Route: 048

REACTIONS (1)
  - Lupus-like syndrome [Recovered/Resolved]
